FAERS Safety Report 4327872-3 (Version None)
Quarter: 2004Q1

REPORT INFORMATION
  Report Type: 
  Country: None (occurrence: None)
  Receive Date: 20040325
  Receipt Date: 20040312
  Transmission Date: 20041129
  Serious: Yes (Hospitalization)
  Sender: FDA-Public Use
  Company Number: ZONI001361

PATIENT
  Age: 33 Year
  Sex: Female

DRUGS (1)
  1. EXCEGRAN (ZONISAMIDE) [Suspect]
     Indication: EPILEPSY
     Dosage: 200 MG DAILY ORAL
     Route: 048
     Dates: start: 20031114, end: 20031212

REACTIONS (4)
  - APATHY [None]
  - PYREXIA [None]
  - SUICIDAL IDEATION [None]
  - TOXIC SKIN ERUPTION [None]
